FAERS Safety Report 25831179 (Version 1)
Quarter: 2025Q3

REPORT INFORMATION
  Report Type: Report from Study
  Country: CN (occurrence: CN)
  Receive Date: 20250922
  Receipt Date: 20250922
  Transmission Date: 20251021
  Serious: Yes (Other)
  Sender: ROCHE
  Company Number: CN-ROCHE-10000011877

PATIENT
  Age: 69 Year
  Sex: Male
  Weight: 69 kg

DRUGS (56)
  1. POLATUZUMAB VEDOTIN [Suspect]
     Active Substance: POLATUZUMAB VEDOTIN
     Indication: Diffuse large B-cell lymphoma
     Route: 042
     Dates: start: 20240322, end: 20240322
  2. POLATUZUMAB VEDOTIN [Suspect]
     Active Substance: POLATUZUMAB VEDOTIN
     Route: 042
     Dates: start: 20240605, end: 20240605
  3. POLATUZUMAB VEDOTIN [Suspect]
     Active Substance: POLATUZUMAB VEDOTIN
     Route: 042
     Dates: start: 20240418, end: 20240418
  4. PREDNISONE [Suspect]
     Active Substance: PREDNISONE
     Indication: Diffuse large B-cell lymphoma
     Route: 048
     Dates: start: 20240605, end: 20240610
  5. PREDNISONE [Suspect]
     Active Substance: PREDNISONE
     Route: 048
     Dates: end: 20240422
  6. METHYLPREDNISOLONE SODIUM SUCCINATE [Suspect]
     Active Substance: METHYLPREDNISOLONE SODIUM SUCCINATE
     Indication: Diffuse large B-cell lymphoma
     Route: 042
     Dates: start: 20240320, end: 20240324
  7. RITUXIMAB [Suspect]
     Active Substance: RITUXIMAB
     Indication: Diffuse large B-cell lymphoma
     Route: 042
     Dates: start: 20240322, end: 20240322
  8. RITUXIMAB [Suspect]
     Active Substance: RITUXIMAB
     Route: 042
     Dates: start: 20240418, end: 20240418
  9. RITUXIMAB [Suspect]
     Active Substance: RITUXIMAB
     Route: 042
     Dates: start: 20240511, end: 20240511
  10. RITUXIMAB [Suspect]
     Active Substance: RITUXIMAB
     Route: 042
     Dates: start: 20240605, end: 20240605
  11. RITUXIMAB [Suspect]
     Active Substance: RITUXIMAB
     Route: 042
     Dates: start: 20240629, end: 20240629
  12. RITUXIMAB [Suspect]
     Active Substance: RITUXIMAB
     Route: 042
     Dates: start: 20240727, end: 20240727
  13. RITUXIMAB [Suspect]
     Active Substance: RITUXIMAB
     Route: 042
     Dates: start: 20240831, end: 20240831
  14. CYCLOPHOSPHAMIDE [Suspect]
     Active Substance: CYCLOPHOSPHAMIDE
     Indication: Diffuse large B-cell lymphoma
     Route: 042
     Dates: start: 20240605, end: 20240605
  15. CYCLOPHOSPHAMIDE [Suspect]
     Active Substance: CYCLOPHOSPHAMIDE
     Route: 042
     Dates: start: 20240322, end: 20240322
  16. CYCLOPHOSPHAMIDE [Suspect]
     Active Substance: CYCLOPHOSPHAMIDE
     Route: 042
     Dates: start: 20240418, end: 20240418
  17. DOXORUBICIN HYDROCHLORIDE [Suspect]
     Active Substance: DOXORUBICIN HYDROCHLORIDE
     Indication: Diffuse large B-cell lymphoma
     Route: 042
     Dates: start: 20240605, end: 20240606
  18. DOXORUBICIN HYDROCHLORIDE [Suspect]
     Active Substance: DOXORUBICIN HYDROCHLORIDE
     Route: 042
     Dates: start: 20240418, end: 20240419
  19. DOXORUBICIN HYDROCHLORIDE [Suspect]
     Active Substance: DOXORUBICIN HYDROCHLORIDE
     Route: 042
     Dates: start: 20240322, end: 20240322
  20. lactulose oral [Concomitant]
     Dates: start: 20240331, end: 20240331
  21. INSULIN GLARGINE [Concomitant]
     Active Substance: INSULIN GLARGINE
     Dates: start: 20240328, end: 20240328
  22. INSULIN GLARGINE [Concomitant]
     Active Substance: INSULIN GLARGINE
     Dates: start: 20240420, end: 20240420
  23. INSULIN GLARGINE [Concomitant]
     Active Substance: INSULIN GLARGINE
     Dates: start: 20240512, end: 20240512
  24. PREDNISONE ACETATE [Concomitant]
     Active Substance: PREDNISONE ACETATE
     Dates: start: 20240423, end: 20240423
  25. PREDNISONE ACETATE [Concomitant]
     Active Substance: PREDNISONE ACETATE
     Dates: start: 20240516, end: 20240516
  26. PREDNISONE ACETATE [Concomitant]
     Active Substance: PREDNISONE ACETATE
     Dates: start: 20240606, end: 20240610
  27. diammonium glycyrrhizinate enteric capsule [Concomitant]
     Dates: start: 20240422
  28. diammonium glycyrrhizinate enteric capsule [Concomitant]
     Dates: start: 20240513
  29. diammonium glycyrrhizinate enteric capsule [Concomitant]
     Dates: start: 20240606
  30. Rabeprazole sodium enteric-coated tablet [Concomitant]
     Dates: start: 20240422, end: 20240422
  31. INSULIN ASPART [Concomitant]
     Active Substance: INSULIN ASPART
     Dates: start: 20240420, end: 20240420
  32. INSULIN ASPART [Concomitant]
     Active Substance: INSULIN ASPART
     Dates: start: 20240512, end: 20240512
  33. INSULIN ASPART [Concomitant]
     Active Substance: INSULIN ASPART
     Route: 058
     Dates: start: 20240603, end: 20240607
  34. Esazolam tablets [Concomitant]
     Dates: start: 20240513, end: 20240513
  35. ENTECAVIR [Concomitant]
     Active Substance: ENTECAVIR
     Dates: start: 20240606
  36. CISPLATIN [Concomitant]
     Active Substance: CISPLATIN
     Route: 042
     Dates: start: 20240901, end: 20240901
  37. DEXAMETHASONE SODIUM PHOSPHATE [Concomitant]
     Active Substance: DEXAMETHASONE SODIUM PHOSPHATE
     Route: 042
     Dates: start: 20240901, end: 20240901
  38. Gemcitabine Hydrochloride injection [Concomitant]
     Route: 042
     Dates: start: 20240901, end: 20240901
  39. Ilaprazole enteric-coated tablet [Concomitant]
     Route: 042
     Dates: start: 20240513, end: 20240513
  40. Andorson (cyclophosphamide for injection) [Concomitant]
     Route: 042
     Dates: start: 20240322, end: 20240323
  41. Andorson (cyclophosphamide for injection) [Concomitant]
     Route: 042
     Dates: start: 20240418, end: 20240419
  42. Andorson (cyclophosphamide for injection) [Concomitant]
     Route: 042
     Dates: start: 20240511, end: 20240512
  43. Andorson (cyclophosphamide for injection) [Concomitant]
     Route: 042
     Dates: start: 20240605, end: 20240606
  44. DEXTROSE [Concomitant]
     Active Substance: DEXTROSE MONOHYDRATE
  45. SODIUM BICARBONATE [Concomitant]
     Active Substance: SODIUM BICARBONATE
  46. ONDANSETRON HYDROCHLORIDE [Concomitant]
     Active Substance: ONDANSETRON HYDROCHLORIDE
  47. Omapride (allopurinol sustained-release capsules) [Concomitant]
  48. Tianqingganping (diammonium glycyrrhizate enteric capsule) [Concomitant]
  49. TYLENOL [Concomitant]
     Active Substance: ACETAMINOPHEN
  50. INSULIN NOS [Concomitant]
     Active Substance: INSULIN NOS
  51. FUROSEMIDE [Concomitant]
     Active Substance: FUROSEMIDE
  52. MOXALACTAM DISODIUM [Concomitant]
     Active Substance: MOXALACTAM DISODIUM
  53. MEROPENEM [Concomitant]
     Active Substance: MEROPENEM
  54. Human blood albumin [Concomitant]
  55. Keratane tablets (loratadine tablets) [Concomitant]
  56. ENEMA (SODIUM PHOSPHATE, DIBASIC\SODIUM PHOSPHATE, MONOBASIC) [Concomitant]
     Active Substance: SODIUM PHOSPHATE, DIBASIC\SODIUM PHOSPHATE, MONOBASIC

REACTIONS (4)
  - Anaemia [Recovered/Resolved]
  - White blood cell count decreased [Recovered/Resolved]
  - Hypoalbuminaemia [Recovered/Resolved]
  - Neutrophil count decreased [Recovered/Resolved]

NARRATIVE: CASE EVENT DATE: 20240330
